FAERS Safety Report 4338570-4 (Version None)
Quarter: 2004Q2

REPORT INFORMATION
  Report Type: 
  Country: None (occurrence: None)
  Receive Date: 20040409
  Receipt Date: 20040330
  Transmission Date: 20050107
  Serious: Yes (Hospitalization)
  Sender: FDA-Public Use
  Company Number: JP-JNJFOC-20040305850

PATIENT
  Age: 76 Year
  Sex: Male

DRUGS (10)
  1. LEVOFLOXACIN [Suspect]
     Indication: UPPER RESPIRATORY TRACT INFLAMMATION
     Dosage: 100 MG, 2 IN 1 DAY, ORAL
     Route: 048
     Dates: start: 20040315, end: 20040317
  2. CALONAL        (PARACETAMOL) [Concomitant]
  3. LENDORM [Concomitant]
  4. ALDACTONE [Concomitant]
  5. LASIX [Concomitant]
  6. TANATRIL (IMIDAPRIL HYDROCHLORIDE) [Concomitant]
  7. ASPIRIN [Concomitant]
  8. JUVELA (TOCOPHEROL) [Concomitant]
  9. ISODINE (PROVIDONE-IODINE) [Concomitant]
  10. SP TROCHE          (DEQUALINIUM CHLORIDE) [Concomitant]

REACTIONS (5)
  - ALANINE AMINOTRANSFERASE INCREASED [None]
  - ASPARTATE AMINOTRANSFERASE INCREASED [None]
  - BLOOD LACTATE DEHYDROGENASE INCREASED [None]
  - PAIN IN EXTREMITY [None]
  - RHABDOMYOLYSIS [None]
